FAERS Safety Report 6793323-2 (Version None)
Quarter: 2010Q2

REPORT INFORMATION
  Report Type: 
  Country: None (occurrence: None)
  Receive Date: 20100624
  Receipt Date: 20091123
  Transmission Date: 20101027
  Serious: Yes (Other)
  Sender: FDA-Public Use
  Company Number: US-MYLANLABS-2009S1020354

PATIENT
  Age: 45 Year
  Sex: Female

DRUGS (16)
  1. CLOZAPINE [Suspect]
     Indication: SCHIZOPHRENIA, PARANOID TYPE
     Route: 048
     Dates: end: 20091118
  2. CHEMOTHERAPEUTICS NOS [Suspect]
     Indication: NEOPLASM MALIGNANT
  3. ADVAIR DISKUS 100/50 [Concomitant]
     Route: 055
  4. ALBUTEROL [Concomitant]
     Route: 055
  5. FOSAMAX [Concomitant]
     Route: 048
  6. ALLOPURINOL [Concomitant]
     Route: 048
  7. COGENTIN [Concomitant]
     Route: 048
  8. LASIX [Concomitant]
     Route: 048
  9. ATIVAN [Concomitant]
     Route: 048
  10. NEXIUM [Concomitant]
     Route: 048
  11. CARDIZEM [Concomitant]
     Route: 048
  12. DEPAKOTE [Concomitant]
     Route: 048
  13. LOVENOX [Concomitant]
     Route: 048
  14. COMBIVENT [Concomitant]
     Route: 055
  15. LIDODERM [Concomitant]
     Route: 062
  16. HYTRIN [Concomitant]
     Route: 048

REACTIONS (2)
  - GRANULOCYTOPENIA [None]
  - LEUKOPENIA [None]
